FAERS Safety Report 20467526 (Version 1)
Quarter: 2022Q1

REPORT INFORMATION
  Report Type: Spontaneous
  Country: US (occurrence: US)
  Receive Date: 20220214
  Receipt Date: 20220214
  Transmission Date: 20220423
  Serious: Yes (Hospitalization, Other)
  Sender: FDA-Public Use
  Company Number: US-JNJFOC-20211061811

PATIENT
  Sex: Female
  Weight: 105.33 kg

DRUGS (1)
  1. REMICADE [Suspect]
     Active Substance: INFLIXIMAB
     Indication: Rheumatoid arthritis
     Route: 042

REACTIONS (6)
  - Muscular weakness [Unknown]
  - Cardiac ablation [Unknown]
  - Palpitations [Unknown]
  - Weight decreased [Unknown]
  - Pain [Unknown]
  - Incorrect product administration duration [Unknown]
